FAERS Safety Report 21132100 (Version 3)
Quarter: 2022Q3

REPORT INFORMATION
  Report Type: Spontaneous
  Country: US (occurrence: US)
  Receive Date: 20220726
  Receipt Date: 20220826
  Transmission Date: 20221027
  Serious: Yes (Life-Threatening)
  Sender: FDA-Public Use
  Company Number: US-PFIZER INC-202201001872

PATIENT
  Age: 12 Year
  Sex: Female

DRUGS (1)
  1. SOMATROPIN [Suspect]
     Active Substance: SOMATROPIN
     Indication: Growth hormone deficiency
     Dosage: 2 MG, 1X/DAY (ONCE A NIGHT AT BEDTIME)
     Route: 058

REACTIONS (2)
  - Heart transplant [Unknown]
  - Post transplant lymphoproliferative disorder [Recovered/Resolved with Sequelae]

NARRATIVE: CASE EVENT DATE: 20210104
